FAERS Safety Report 4485610-8 (Version None)
Quarter: 2004Q4

REPORT INFORMATION
  Report Type: 
  Country: None (occurrence: None)
  Receive Date: 20041026
  Receipt Date: 20041018
  Transmission Date: 20050328
  Serious: Yes (Death)
  Sender: FDA-Public Use
  Company Number: ES-JNJFOC-20041001085

PATIENT
  Age: 34 Year
  Sex: Female

DRUGS (4)
  1. TOPAMAX [Suspect]
  2. RISPERDAL CONSTA [Suspect]
  3. TRILEPTAL [Concomitant]
     Route: 065
  4. CLORAZEPATE DIPOTASSIUM [Concomitant]

REACTIONS (1)
  - COMPLETED SUICIDE [None]
